FAERS Safety Report 6966317-1 (Version None)
Quarter: 2010Q3

REPORT INFORMATION
  Report Type: 
  Country: None (occurrence: None)
  Receive Date: 20100903
  Receipt Date: 20100826
  Transmission Date: 20110219
  Serious: Yes (Hospitalization, Other)
  Sender: FDA-Public Use
  Company Number: LT-AMGEN-UK369713

PATIENT
  Sex: Female
  Weight: 46 kg

DRUGS (13)
  1. DENOSUMAB [Suspect]
     Indication: OSTEOPOROSIS POSTMENOPAUSAL
     Route: 058
     Dates: start: 20080101, end: 20090713
  2. CALCIGRAN [Concomitant]
     Route: 048
  3. ACETAMINOPHEN, ASPIRIN AND CAFFEINE [Concomitant]
     Route: 048
  4. NITROGLYCERIN [Concomitant]
     Route: 048
  5. UNSPECIFIED TOPICAL PRODUCT [Concomitant]
     Route: 061
  6. BROMAZEPAM [Concomitant]
     Route: 048
  7. DORMICUM ^ROCHE^ [Concomitant]
     Route: 048
     Dates: start: 20090903, end: 20090903
  8. DIAZEPAM [Concomitant]
     Dates: start: 20091019, end: 20091025
  9. CARDIOVASCULAR SYSTEM DRUGS [Concomitant]
  10. ASCORBIC ACID [Concomitant]
  11. VITAMIN A [Concomitant]
  12. VITAMIN E [Concomitant]
  13. UNSPECIFIED HERBAL PRODUCT [Concomitant]
     Dates: start: 20090605

REACTIONS (1)
  - OSTEOMYELITIS [None]
